FAERS Safety Report 21002480 (Version 1)
Quarter: 2022Q2

REPORT INFORMATION
  Report Type: Spontaneous
  Country: US (occurrence: None)
  Receive Date: 20220623
  Receipt Date: 20220623
  Transmission Date: 20220721
  Serious: No
  Sender: FDA-Public Use
  Company Number: None

PATIENT
  Sex: Male
  Weight: 72.57 kg

DRUGS (37)
  1. ABIRATERONE ACETATE [Suspect]
     Active Substance: ABIRATERONE ACETATE
     Indication: Prostate cancer
     Dosage: FREQUENCY : DAILY;?
     Route: 048
     Dates: start: 202206, end: 202206
  2. ACTONEL [Concomitant]
     Active Substance: RISEDRONATE SODIUM
  3. Acyclovir External Ointment 5% [Concomitant]
  4. ALENDRONATE SODIUM [Concomitant]
     Active Substance: ALENDRONATE SODIUM
  5. ALLEGRA ALLERGY [Concomitant]
     Active Substance: FEXOFENADINE HYDROCHLORIDE
  6. AMOXICILLIN [Concomitant]
     Active Substance: AMOXICILLIN
  7. ASPIRIN [Concomitant]
     Active Substance: ASPIRIN
  8. Astepro Nasal Solution 0.15% [Concomitant]
  9. AUGMENTIN [Concomitant]
     Active Substance: AMOXICILLIN\CLAVULANATE POTASSIUM
  10. AZELASTINE HYDROCHLORIDE [Concomitant]
     Active Substance: AZELASTINE HYDROCHLORIDE
  11. CALCIUM\VITAMIN D [Concomitant]
     Active Substance: CALCIUM\VITAMIN D
  12. CEFDINIR [Concomitant]
     Active Substance: CEFDINIR
  13. CIALIS [Concomitant]
     Active Substance: TADALAFIL
  14. CIPROFLOXACIN HYDROCHLORIDE [Concomitant]
     Active Substance: CIPROFLOXACIN HYDROCHLORIDE
  15. Clotrimazole Anti-Fungal External C [Concomitant]
  16. Cutivate External Lotion 0.05 % [Concomitant]
  17. D 5000 [Concomitant]
  18. DIGOXIN [Concomitant]
     Active Substance: DIGOXIN
  19. DOXYCYCLINE HYCLATE [Concomitant]
     Active Substance: DOXYCYCLINE HYCLATE
  20. ELIQUIS [Concomitant]
     Active Substance: APIXABAN
  21. FAMOTIDINE [Concomitant]
     Active Substance: FAMOTIDINE
  22. FERROUS GLUCONATE [Concomitant]
     Active Substance: FERROUS GLUCONATE
  23. Fluocinonide External Cream 0.05 % [Concomitant]
  24. FUROSEMIDE [Concomitant]
     Active Substance: FUROSEMIDE
  25. HYDROXYCHLOROQUINE SULFATE [Concomitant]
     Active Substance: HYDROXYCHLOROQUINE SULFATE
  26. Imiquimod External Cream [Concomitant]
  27. METOPROLOL TARTRATE [Concomitant]
     Active Substance: METOPROLOL TARTRATE
  28. Metoprolol-hydrochlorothiazide [Concomitant]
  29. OMEPRAZOLE [Concomitant]
     Active Substance: OMEPRAZOLE
  30. POTASSIUM CHLORIDE [Concomitant]
     Active Substance: POTASSIUM CHLORIDE
  31. PRAVASTATIN SODIUM [Concomitant]
     Active Substance: PRAVASTATIN SODIUM
  32. PREDNISONE [Concomitant]
     Active Substance: PREDNISONE
  33. SULFAMETHOXAZOLE\TRIMETHOPRIM [Concomitant]
     Active Substance: SULFAMETHOXAZOLE\TRIMETHOPRIM
  34. VITAMIN C [Concomitant]
     Active Substance: ASCORBIC ACID
  35. VITAMIN D [Concomitant]
     Active Substance: VITAMIN D NOS
  36. WARFARIN [Concomitant]
     Active Substance: WARFARIN
  37. ZYRTEC [Concomitant]
     Active Substance: CETIRIZINE HYDROCHLORIDE

REACTIONS (2)
  - Carotid pulse abnormal [None]
  - Peripheral swelling [None]
